FAERS Safety Report 4699343-6 (Version None)
Quarter: 2005Q2

REPORT INFORMATION
  Report Type: 
  Country: None (occurrence: None)
  Receive Date: 20050622
  Receipt Date: 20050616
  Transmission Date: 20051028
  Serious: Yes (Death, Life-Threatening)
  Sender: FDA-Public Use
  Company Number: MEDI-0003398

PATIENT
  Age: 11 Month
  Sex: Female
  Weight: 5.3 kg

DRUGS (3)
  1. SYNAGIS [Suspect]
     Indication: ANTIVIRAL PROPHYLAXIS
     Dosage: 85 MG, 1 IN 30 D, INTRAMUSCULAR; 78 MG, 1 IN 30 D, INTRAMUSCULAR
     Route: 030
     Dates: start: 20050118, end: 20050221
  2. SYNAGIS [Suspect]
     Indication: ANTIVIRAL PROPHYLAXIS
     Dosage: 85 MG, 1 IN 30 D, INTRAMUSCULAR; 78 MG, 1 IN 30 D, INTRAMUSCULAR
     Route: 030
     Dates: start: 20050118
  3. DIGOXIN [Concomitant]

REACTIONS (5)
  - BRONCHIOLITIS [None]
  - CONDITION AGGRAVATED [None]
  - OXYGEN SATURATION DECREASED [None]
  - RESPIRATORY DISORDER [None]
  - RESPIRATORY FAILURE [None]
